FAERS Safety Report 8005113-3 (Version None)
Quarter: 2011Q4

REPORT INFORMATION
  Report Type: 
  Country: None (occurrence: None)
  Receive Date: 20111223
  Receipt Date: 20111212
  Transmission Date: 20120403
  Serious: Yes (Other)
  Sender: FDA-Public Use
  Company Number: PHEH2011US03105

PATIENT
  Sex: Female

DRUGS (15)
  1. BENADRYL [Concomitant]
  2. LORAZEPAM [Concomitant]
  3. HYDROCHLOROTHIAZIDE [Concomitant]
  4. REGLAN [Concomitant]
  5. ZOMETA [Suspect]
     Indication: METASTASES TO BONE
     Dosage: 4 MG, QMO
     Dates: start: 20020607
  6. TAGAMET [Concomitant]
  7. TOPROL-XL [Concomitant]
     Dosage: 50 MG, QD
  8. AREDIA [Suspect]
     Indication: METASTASES TO BONE
     Dosage: 90 MG, QMO
     Route: 042
     Dates: start: 19990422, end: 20041101
  9. PERCOCET [Concomitant]
  10. TRAZODONE [Concomitant]
     Dosage: 150 MG, PRN
  11. ACETAMINOPHEN [Concomitant]
  12. ZITHROMAX [Concomitant]
  13. CYMBALTA [Concomitant]
     Dosage: 60 MG, QD
  14. PLETAL [Concomitant]
     Dosage: 50 MG, BID
  15. CELEBREX [Concomitant]

REACTIONS (43)
  - VARICOSE VEIN [None]
  - HAEMORRHOIDS [None]
  - DIARRHOEA [None]
  - MUSCULOSKELETAL PAIN [None]
  - ABDOMINAL PAIN [None]
  - VAGINAL DISCHARGE [None]
  - OSTEOPOROSIS [None]
  - FACET JOINT SYNDROME [None]
  - ARTERIOSCLEROSIS [None]
  - INTERVERTEBRAL DISC PROTRUSION [None]
  - ODYNOPHAGIA [None]
  - PAIN IN EXTREMITY [None]
  - DYSPNOEA [None]
  - GASTROOESOPHAGEAL REFLUX DISEASE [None]
  - HEADACHE [None]
  - BLOOD UREA INCREASED [None]
  - HYPOXIA [None]
  - ANGINA PECTORIS [None]
  - FALL [None]
  - MYOCARDIAL INFARCTION [None]
  - HYPERURICAEMIA [None]
  - LYMPH NODE CALCIFICATION [None]
  - NECK PAIN [None]
  - RESPIRATORY FAILURE [None]
  - CORONARY ARTERY DISEASE [None]
  - SUBCUTANEOUS NODULE [None]
  - HEPATITIS B SURFACE ANTIGEN POSITIVE [None]
  - EPIDURAL LIPOMATOSIS [None]
  - DERMAL CYST [None]
  - CHRONIC OBSTRUCTIVE PULMONARY DISEASE [None]
  - DYSURIA [None]
  - PROTHROMBIN TIME PROLONGED [None]
  - THROMBOSIS [None]
  - LARYNGITIS [None]
  - FOOT FRACTURE [None]
  - OEDEMA PERIPHERAL [None]
  - BONE PAIN [None]
  - BRONCHITIS [None]
  - VENOUS INSUFFICIENCY [None]
  - COUGH [None]
  - INTERVERTEBRAL DISC DEGENERATION [None]
  - SPINAL OSTEOARTHRITIS [None]
  - CYANOSIS [None]
